FAERS Safety Report 8548780-8 (Version None)
Quarter: 2012Q3

REPORT INFORMATION
  Report Type: 
  Country: None (occurrence: None)
  Receive Date: 20120730
  Receipt Date: 20120719
  Transmission Date: 20120928
  Serious: Yes (Other)
  Sender: FDA-Public Use
  Company Number: CN-NOVOPROD-356041

PATIENT
  Age: 72 Year
  Sex: Female
  Weight: 80 kg

DRUGS (3)
  1. METFORMIN HYDROCHLORIDE [Concomitant]
     Indication: DIABETES MELLITUS
  2. NOVOMIX 30 [Suspect]
     Indication: DIABETES MELLITUS
     Dosage: 15 IU, UNK
     Route: 065
  3. GLUCOBAY [Concomitant]
     Indication: DIABETES MELLITUS

REACTIONS (4)
  - PERIPHERAL ARTERIAL OCCLUSIVE DISEASE [None]
  - BLOOD GLUCOSE INCREASED [None]
  - RENAL IMPAIRMENT [None]
  - CONDITION AGGRAVATED [None]
